FAERS Safety Report 4614040-0 (Version None)
Quarter: 2005Q1

REPORT INFORMATION
  Report Type: 
  Country: None (occurrence: None)
  Receive Date: 20050316
  Receipt Date: 20050301
  Transmission Date: 20050727
  Serious: Yes (Death)
  Sender: FDA-Public Use
  Company Number: GBS050316789

PATIENT
  Age: 33 Year
  Sex: Male

DRUGS (2)
  1. OLANZAPINE [Suspect]
     Indication: ANXIETY
     Dosage: 7.5 MG DAY
     Dates: start: 20040212
  2. MIRTAZAPINE [Concomitant]

REACTIONS (2)
  - COMPLETED SUICIDE [None]
  - INJURY ASPHYXIATION [None]
